FAERS Safety Report 23678627 (Version 4)
Quarter: 2024Q2

REPORT INFORMATION
  Report Type: Spontaneous
  Country: US (occurrence: US)
  Receive Date: 20240327
  Receipt Date: 20240503
  Transmission Date: 20240716
  Serious: No
  Sender: FDA-Public Use
  Company Number: US-PFIZER INC-202400070844

PATIENT
  Age: 64 Year
  Sex: Female

DRUGS (1)
  1. XELJANZ XR [Suspect]
     Active Substance: TOFACITINIB CITRATE
     Indication: Psoriatic arthropathy
     Dosage: 11 MG, 1X/DAY
     Dates: start: 20230906

REACTIONS (5)
  - Myalgia [Not Recovered/Not Resolved]
  - Pain in extremity [Unknown]
  - Musculoskeletal stiffness [Unknown]
  - Bursitis [Unknown]
  - Osteoarthritis [Unknown]
